FAERS Safety Report 4415433-7 (Version None)
Quarter: 2004Q2

REPORT INFORMATION
  Report Type: 
  Country: None (occurrence: None)
  Receive Date: 20040630
  Receipt Date: 20031202
  Transmission Date: 20050107
  Serious: Yes (Other)
  Sender: FDA-Public Use
  Company Number: 2003112365

PATIENT
  Age: 21 Year
  Sex: Male
  Weight: 72.5755 kg

DRUGS (8)
  1. ZOLOFT [Suspect]
     Indication: DEPRESSION
     Dosage: 25 MG (DAILY), ORAL
     Route: 048
     Dates: start: 20031012
  2. LORAZEPAM [Concomitant]
  3. FENTANYL [Concomitant]
  4. SODIUM BICARBONATE IN PLASTIC CONTAINER [Concomitant]
  5. FLUCONAZOLE [Concomitant]
  6. FUROSEMIDE [Concomitant]
  7. PIPERACILLIN [Concomitant]
  8. VANCOMYCIN [Concomitant]

REACTIONS (1)
  - RENAL FAILURE [None]
